FAERS Safety Report 5778658-4 (Version None)
Quarter: 2008Q2

REPORT INFORMATION
  Report Type: 
  Country: None (occurrence: None)
  Receive Date: 20080619
  Receipt Date: 20080611
  Transmission Date: 20081010
  Serious: Yes (Other)
  Sender: FDA-Public Use
  Company Number: B0509575A

PATIENT
  Age: 40 Year
  Sex: Female
  Weight: 65 kg

DRUGS (3)
  1. AROPAX [Suspect]
     Indication: DRUG USE FOR UNKNOWN INDICATION
  2. FOLIC ACID [Suspect]
     Indication: PREGNANCY
     Route: 048
  3. GEMEPROST [Suspect]
     Indication: DRUG USE FOR UNKNOWN INDICATION
     Route: 065

REACTIONS (1)
  - ABORTION INDUCED [None]
